FAERS Safety Report 7109285-4 (Version None)
Quarter: 2010Q4

REPORT INFORMATION
  Report Type: 
  Country: None (occurrence: None)
  Receive Date: 20101117
  Receipt Date: 20101008
  Transmission Date: 20110411
  Serious: Yes (Hospitalization)
  Sender: FDA-Public Use
  Company Number: CO-AMGEN-QUU444149

PATIENT

DRUGS (10)
  1. BLINDED ETANERCEPT [Suspect]
     Indication: RHEUMATOID ARTHRITIS
     Dosage: 50 MG, QWK
     Route: 058
     Dates: start: 20090511
  2. PLACEBO [Suspect]
     Indication: RHEUMATOID ARTHRITIS
     Dosage: 50 MG, QWK
     Route: 058
     Dates: start: 20090511
  3. METHOTREXATE [Suspect]
     Indication: RHEUMATOID ARTHRITIS
     Dosage: 15 MG, QWK
     Route: 048
     Dates: start: 20090511
  4. TIROXINA [Concomitant]
     Indication: HYPOTHYROIDISM
     Dosage: UNK UNK, UNK
     Dates: start: 20040601
  5. TIROXINA [Concomitant]
     Dosage: 150MG; UNSPECIFIED FREQUENCY
     Dates: start: 20040601
  6. CHLOROQUINE PHOSPHATE [Concomitant]
     Indication: RHEUMATOID ARTHRITIS
     Dosage: UNSPECIFIED
     Dates: start: 20100905
  7. PREDNISOLONE [Concomitant]
     Indication: RHEUMATOID ARTHRITIS
     Dosage: UNK UNK, UNK
  8. PREDNISOLONE [Concomitant]
     Dosage: 7.5MG; UNSPECIFIED FREQUENCY
  9. FOLIC ACID [Concomitant]
     Dosage: UNK UNK, UNK
     Dates: start: 20080411
  10. FOLIC ACID [Concomitant]
     Dosage: 1MG; UNSPECIFIED FREQUENCY
     Dates: start: 20080411

REACTIONS (3)
  - SEPSIS [None]
  - URINARY TRACT INFECTION [None]
  - VENOUS THROMBOSIS [None]
